FAERS Safety Report 5909355-X (Version None)
Quarter: 2008Q4

REPORT INFORMATION
  Report Type: 
  Country: None (occurrence: None)
  Receive Date: 20081002
  Receipt Date: 20080925
  Transmission Date: 20090506
  Serious: Yes (Hospitalization, Other)
  Sender: FDA-Public Use
  Company Number: TPG2008A00058

PATIENT
  Age: 55 Year
  Sex: Male

DRUGS (8)
  1. RAMIPRIL [Suspect]
     Indication: HYPERTENSION
     Dosage: PER ORAL
     Route: 048
     Dates: start: 20071123
  2. METOHEXAL (METOPROLOL TARTRATE) [Concomitant]
  3. RAMIPRIL [Concomitant]
  4. MOLSIDOMINE (MOLSIDOMINE) [Concomitant]
  5. ISOKET RETARD (ISOSORBIDE DINITRATE) [Concomitant]
  6. PRAVASTATIN [Concomitant]
  7. NEXIUM [Concomitant]
  8. PLAVIX [Concomitant]

REACTIONS (2)
  - ARTHRALGIA [None]
  - OSTEOARTHRITIS [None]
